FAERS Safety Report 23274556 (Version 1)
Quarter: 2023Q4

REPORT INFORMATION
  Report Type: Report from Study
  Country: US (occurrence: None)
  Receive Date: 20231208
  Receipt Date: 20231208
  Transmission Date: 20240109
  Serious: Yes (Hospitalization)
  Sender: FDA-Public Use
  Company Number: 2023A272148

PATIENT
  Age: 21516 Day
  Sex: Female

DRUGS (2)
  1. LYNPARZA [Suspect]
     Active Substance: OLAPARIB
     Route: 048
     Dates: start: 20231012
  2. ORAL ANTIBIOTIC [Concomitant]

REACTIONS (2)
  - Back pain [Unknown]
  - Kidney infection [Unknown]

NARRATIVE: CASE EVENT DATE: 20231122
